FAERS Safety Report 14072601 (Version 3)
Quarter: 2019Q1

REPORT INFORMATION
  Report Type: Spontaneous
  Country: US (occurrence: US)
  Receive Date: 20171010
  Receipt Date: 20190227
  Transmission Date: 20190417
  Serious: No
  Sender: FDA-Public Use
  Company Number: US-SA-2017SA171745

PATIENT
  Age: 46 Year
  Sex: Female

DRUGS (5)
  1. SINGULAIR [Concomitant]
     Active Substance: MONTELUKAST SODIUM
     Dosage: UNK UNK,UNK
     Route: 065
  2. DUPIXENT [Suspect]
     Active Substance: DUPILUMAB
     Dosage: 300 MG,QOW
     Route: 058
     Dates: start: 20170907
  3. LYSINE [Concomitant]
     Active Substance: LYSINE
     Dosage: UNK UNK,UNK
     Route: 065
  4. DUPIXENT [Suspect]
     Active Substance: DUPILUMAB
     Indication: DERMATITIS ATOPIC
     Dosage: 600 MG,1X
     Route: 058
     Dates: start: 20170824, end: 20170824
  5. BENICAR [Concomitant]
     Active Substance: OLMESARTAN MEDOXOMIL
     Dosage: UNK UNK,UNK
     Route: 065

REACTIONS (5)
  - Oral herpes [Not Recovered/Not Resolved]
  - Prostatic specific antigen increased [Recovering/Resolving]
  - Eczema [Not Recovered/Not Resolved]
  - Dermatitis [Recovered/Resolved]
  - Condition aggravated [Not Recovered/Not Resolved]

NARRATIVE: CASE EVENT DATE: 20170830
